FAERS Safety Report 20648135 (Version 8)
Quarter: 2022Q3

REPORT INFORMATION
  Report Type: Report from Study
  Country: AU (occurrence: AU)
  Receive Date: 20220329
  Receipt Date: 20220921
  Transmission Date: 20221027
  Serious: Yes (Other)
  Sender: FDA-Public Use
  Company Number: AU-NOVARTISPH-NVSC2021AU292032

PATIENT
  Sex: Female

DRUGS (2)
  1. KESIMPTA [Suspect]
     Active Substance: OFATUMUMAB
     Indication: Relapsing-remitting multiple sclerosis
     Dosage: 20 MG, QMO
     Route: 058
     Dates: start: 20210920
  2. BOTOX [Concomitant]
     Active Substance: ONABOTULINUMTOXINA
     Indication: Product used for unknown indication
     Dosage: UNK
     Route: 065

REACTIONS (23)
  - Choking [Unknown]
  - Anxiety [Not Recovered/Not Resolved]
  - Bruxism [Unknown]
  - COVID-19 [Recovered/Resolved]
  - Oropharyngeal discomfort [Recovering/Resolving]
  - Mood altered [Unknown]
  - Insomnia [Unknown]
  - Upper-airway cough syndrome [Unknown]
  - Oropharyngeal pain [Recovering/Resolving]
  - Productive cough [Unknown]
  - Salivary hypersecretion [Unknown]
  - Stress [Unknown]
  - Pharyngeal swelling [Unknown]
  - Aphonia [Unknown]
  - Dysphagia [Not Recovered/Not Resolved]
  - Myalgia [Unknown]
  - Malaise [Unknown]
  - Back pain [Unknown]
  - Depression [Unknown]
  - Fatigue [Unknown]
  - Inappropriate schedule of product administration [Unknown]
  - Circumstance or information capable of leading to medication error [Unknown]
  - Product dose omission issue [Unknown]

NARRATIVE: CASE EVENT DATE: 20210101
